FAERS Safety Report 6018987-2 (Version None)
Quarter: 2008Q4

REPORT INFORMATION
  Report Type: 
  Country: None (occurrence: None)
  Receive Date: 20081224
  Receipt Date: 20081222
  Transmission Date: 20090506
  Serious: Yes (Hospitalization, Other)
  Sender: FDA-Public Use
  Company Number: FR-BRISTOL-MYERS SQUIBB COMPANY-14451900

PATIENT
  Age: 89 Year
  Sex: Female

DRUGS (9)
  1. COAPROVEL FILM-COATED TABS 150/12.5 MG [Suspect]
     Dosage: 1DOSAGE FORM=150MG/12.5MG
     Dates: start: 20081118, end: 20081128
  2. DIGITALINE NATIVELLE [Suspect]
     Dosage: NO. OF DOSE:1/2 PER DAY
     Dates: start: 20030101, end: 20081127
  3. DILTIAZEM HCL [Suspect]
     Dosage: BI-TILDIEM LP
     Dates: start: 20030101, end: 20081128
  4. DIFFU-K [Concomitant]
  5. PREVISCAN [Concomitant]
     Dosage: NO. OF DOSE:3/4 ON EVEN DAYS AND 1/2 ON ODD DAYS.
  6. DEROXAT [Concomitant]
     Dates: start: 20030101
  7. DIPIPERON [Concomitant]
     Dates: start: 20030101
  8. CALCIDOSE [Concomitant]
     Dosage: 1DOSAGE FORM=500 UNITS NOT SPECIFIED
     Dates: start: 20030101
  9. LASILIX [Concomitant]
     Dates: start: 20030101, end: 20081120

REACTIONS (5)
  - BRADYCARDIA [None]
  - HYPOTENSION [None]
  - LOSS OF CONSCIOUSNESS [None]
  - MALAISE [None]
  - RENAL FAILURE [None]
